FAERS Safety Report 5062678-1 (Version None)
Quarter: 2006Q3

REPORT INFORMATION
  Report Type: 
  Country: None (occurrence: None)
  Receive Date: 20060724
  Receipt Date: 20060724
  Transmission Date: 20061208
  Serious: Yes (Hospitalization)
  Sender: FDA-Public Use
  Company Number: None

PATIENT
  Age: 24 Year
  Sex: Male
  Weight: 58.9676 kg

DRUGS (3)
  1. NEOMYCIN/BISMUTH SUBCARB   -COMPOUNDED- [Suspect]
     Indication: KLEBSIELLA INFECTION
     Dosage: 3X A DAY FOR 10 DAYS
     Route: 048
     Dates: start: 20060712, end: 20060716
  2. NEOMYCIN/BISMUTH SUBCARB   -COMPOUNDED- [Suspect]
     Indication: LYME DISEASE
     Dosage: 3X A DAY FOR 10 DAYS
     Route: 048
     Dates: start: 20060712, end: 20060716
  3. TEGRETOL [Concomitant]

REACTIONS (1)
  - RENAL FAILURE [None]
